FAERS Safety Report 9521921 (Version 1)
Quarter: 2013Q3

REPORT INFORMATION
  Report Type: Spontaneous
  Country: GB (occurrence: GB)
  Receive Date: 20130913
  Receipt Date: 20130913
  Transmission Date: 20140515
  Serious: Yes (Other)
  Sender: FDA-Public Use
  Company Number: GB-UCBSA-097670

PATIENT
  Age: 52 Year
  Sex: Female

DRUGS (1)
  1. LEVETIRACETAM [Suspect]
     Indication: EPILEPSY
     Dosage: DOSE: UNKNOWN

REACTIONS (3)
  - Dysstasia [Unknown]
  - Emotional disorder [Unknown]
  - Urinary incontinence [Unknown]
